FAERS Safety Report 9057650 (Version 1)
Quarter: 2013Q1

REPORT INFORMATION
  Report Type: Spontaneous
  Country: US (occurrence: None)
  Receive Date: 20130204
  Receipt Date: 20130204
  Transmission Date: 20140127
  Serious: Yes (Hospitalization)
  Sender: FDA-Public Use
  Company Number: None

PATIENT
  Age: 81 Year
  Sex: Male
  Weight: 68 kg

DRUGS (12)
  1. ERBITUX [Suspect]
     Indication: CHEMOTHERAPY
     Route: 042
     Dates: start: 20121119
  2. FINASTERIDE [Concomitant]
  3. NABUMETONE [Concomitant]
  4. OMEPRAZOLE [Concomitant]
  5. KLOR CON M [Concomitant]
  6. FLOMAX [Concomitant]
  7. VITAMIN B12 [Concomitant]
  8. FERROUS SULFATE [Concomitant]
  9. GUAIFENESIN [Concomitant]
  10. MIRALAX [Concomitant]
  11. MORPHINE [Concomitant]
  12. ZYRTEC [Concomitant]

REACTIONS (6)
  - Back pain [None]
  - Chills [None]
  - Chills [None]
  - Confusional state [None]
  - Hypertension [None]
  - Agitation [None]
